FAERS Safety Report 4296029-7 (Version None)
Quarter: 2004Q1

REPORT INFORMATION
  Report Type: 
  Country: None (occurrence: None)
  Receive Date: 20040212
  Receipt Date: 20040206
  Transmission Date: 20041129
  Serious: Yes (Hospitalization, Other)
  Sender: FDA-Public Use
  Company Number: 2004-00510

PATIENT
  Age: 82 Year
  Sex: Female
  Weight: 44.4 kg

DRUGS (16)
  1. QUININE (WATSON LABORATORIES) (QUININE SULFATE) TABLET, 260MG [Suspect]
     Indication: MUSCLE CRAMP
     Dosage: 1 OPR 4 TABLETS X 1 DOSE, ORAL
     Route: 048
     Dates: start: 20040127, end: 20040127
  2. ARICEPT [Concomitant]
  3. TYLENOL [Concomitant]
  4. ACETYLSALICYLIC ACID SRT [Concomitant]
  5. CENTRUM (MINERALS NOS) [Concomitant]
  6. ANTIVERT ^ROERIG^ (MECLOZINE HYDROCHLORIDE, NICOTINIC ACID) [Concomitant]
  7. PREDNISONE [Concomitant]
  8. VOLTAREN [Concomitant]
  9. ADVAIR (FLUTICASONE PROPIONATE) [Concomitant]
  10. ALBUTEROL [Concomitant]
  11. VERAPAMIL [Concomitant]
  12. LANOXIN [Concomitant]
  13. XANAX [Concomitant]
  14. DARVOCET (PARACETAMOL) [Concomitant]
  15. MILK OF MAGNESIA TAB [Concomitant]
  16. FOSAMAX [Concomitant]

REACTIONS (7)
  - ACCIDENTAL OVERDOSE [None]
  - CONFUSIONAL STATE [None]
  - CONTUSION [None]
  - HYPERHIDROSIS [None]
  - LOSS OF CONSCIOUSNESS [None]
  - MEDICATION ERROR [None]
  - VOMITING [None]
